FAERS Safety Report 5600524-5 (Version None)
Quarter: 2008Q1

REPORT INFORMATION
  Report Type: 
  Country: None (occurrence: None)
  Receive Date: 20080111
  Receipt Date: 20071012
  Transmission Date: 20080703
  Serious: Yes (Other)
  Sender: FDA-Public Use
  Company Number: HQWYE300521JUL04

PATIENT
  Age: 56 Year
  Sex: Female
  Weight: 67.19 kg

DRUGS (4)
  1. PREMPRO [Suspect]
     Indication: MENSTRUATION IRREGULAR
     Dosage: ORAL
     Route: 048
     Dates: end: 19980101
  2. PREMARIN [Suspect]
     Indication: HAEMORRHAGE
  3. PREMARIN [Suspect]
     Indication: MENSTRUATION IRREGULAR
  4. PROVERA [Suspect]
     Dosage: ORAL
     Route: 048
     Dates: start: 19920701

REACTIONS (2)
  - BREAST CANCER [None]
  - OVARIAN CANCER [None]
